FAERS Safety Report 5523014-7 (Version None)
Quarter: 2007Q4

REPORT INFORMATION
  Report Type: 
  Country: None (occurrence: None)
  Receive Date: 20071116
  Receipt Date: 20071116
  Transmission Date: 20080405
  Serious: Yes (Hospitalization)
  Sender: FDA-Public Use
  Company Number: None

PATIENT
  Age: 36 Year
  Sex: Female
  Weight: 102 kg

DRUGS (1)
  1. NUVARING [Suspect]

REACTIONS (1)
  - DEEP VEIN THROMBOSIS [None]
